FAERS Safety Report 18499268 (Version 3)
Quarter: 2025Q3

REPORT INFORMATION
  Report Type: Report from Study
  Country: US (occurrence: US)
  Receive Date: 20201112
  Receipt Date: 20250829
  Transmission Date: 20251020
  Serious: No
  Sender: TAKEDA
  Company Number: US-TAKEDA-2020TUS046386

PATIENT
  Age: 73 Year
  Sex: Male
  Weight: 62 kg

DRUGS (14)
  1. HUMAN IMMUNOGLOBULIN G\HYALURONIDASE RECOMBINANT HUMAN [Suspect]
     Active Substance: HUMAN IMMUNOGLOBULIN G\HYALURONIDASE (HUMAN RECOMBINANT)
     Indication: Primary immunodeficiency syndrome
     Dosage: 30 GRAM, Q4WEEKS
  2. HUMAN IMMUNOGLOBULIN G\HYALURONIDASE RECOMBINANT HUMAN [Suspect]
     Active Substance: HUMAN IMMUNOGLOBULIN G\HYALURONIDASE (HUMAN RECOMBINANT)
     Indication: Immunodeficiency common variable
     Dosage: 33 GRAM, MONTHLY
  3. DIPHENHYDRAMINE HYDROCHLORIDE [Concomitant]
     Active Substance: DIPHENHYDRAMINE HYDROCHLORIDE
  4. IBUPROFEN [Concomitant]
     Active Substance: IBUPROFEN
  5. ACETAMINOPHEN [Concomitant]
     Active Substance: ACETAMINOPHEN
  6. ZINC [Concomitant]
     Active Substance: ZINC
  7. LORATADINE [Concomitant]
     Active Substance: LORATADINE
  8. SODIUM CHLORIDE [Concomitant]
     Active Substance: SODIUM CHLORIDE
  9. PHENOBARBITAL [Concomitant]
     Active Substance: PHENOBARBITAL
  10. VITAMIN C [Concomitant]
     Active Substance: ASCORBIC ACID
  11. Lmx [Concomitant]
  12. VITAMIN D3 [Concomitant]
     Active Substance: CHOLECALCIFEROL
  13. EPINEPHRINE [Concomitant]
     Active Substance: EPINEPHRINE
  14. ZINC GLUCONATE [Concomitant]
     Active Substance: ZINC GLUCONATE

REACTIONS (15)
  - Dizziness [Not Recovered/Not Resolved]
  - Weight decreased [Unknown]
  - Rubber sensitivity [Unknown]
  - Escherichia infection [Not Recovered/Not Resolved]
  - Reaction to colouring [Unknown]
  - Underdose [Unknown]
  - Feeling abnormal [Unknown]
  - Inappropriate schedule of product administration [Unknown]
  - Dehydration [Unknown]
  - Rash [Unknown]
  - Infusion site swelling [Unknown]
  - Infusion site pain [Unknown]
  - Food allergy [Not Recovered/Not Resolved]
  - Nasopharyngitis [Recovered/Resolved]
  - Urticaria [Not Recovered/Not Resolved]

NARRATIVE: CASE EVENT DATE: 20230630
